FAERS Safety Report 8075866-7 (Version None)
Quarter: 2012Q1

REPORT INFORMATION
  Report Type: 
  Country: None (occurrence: None)
  Receive Date: 20120127
  Receipt Date: 20120123
  Transmission Date: 20120608
  Serious: No
  Sender: FDA-Public Use
  Company Number: US-PFIZER INC-2012019061

PATIENT
  Sex: Male
  Weight: 90.703 kg

DRUGS (5)
  1. SIMVASTATIN [Concomitant]
     Indication: BLOOD CHOLESTEROL ABNORMAL
     Dosage: 80 MG, DAILY
  2. ADVIL CONGESTION RELIEF [Suspect]
     Indication: RHINORRHOEA
     Dosage: UNK
     Route: 048
     Dates: start: 20120120, end: 20120121
  3. LORAZEPAM [Concomitant]
     Indication: INSOMNIA
     Dosage: 2 MG, 2X/DAY
  4. ADVIL CONGESTION RELIEF [Suspect]
     Indication: NASAL CONGESTION
  5. ADVIL CONGESTION RELIEF [Suspect]
     Indication: OROPHARYNGEAL PAIN

REACTIONS (4)
  - BODY TEMPERATURE INCREASED [None]
  - FLUSHING [None]
  - DRUG INEFFECTIVE [None]
  - INCORRECT DOSE ADMINISTERED [None]
